FAERS Safety Report 8816361 (Version 1)
Quarter: 2012Q4

REPORT INFORMATION
  Report Type: Spontaneous
  Country: US (occurrence: None)
  Receive Date: 20120928
  Receipt Date: 20120928
  Transmission Date: 20130627
  Serious: Yes (Hospitalization, Other)
  Sender: FDA-Public Use
  Company Number: None

PATIENT
  Age: 26 Year
  Sex: Female
  Weight: 52.16 kg

DRUGS (1)
  1. LUPRON DEPOT [Suspect]
     Indication: ENDOMETRIOSIS
     Dosage: 11.25 mg 3 month dose
     Dates: start: 20120130, end: 20120430

REACTIONS (18)
  - Dyspnoea [None]
  - Dysphagia [None]
  - Chest pain [None]
  - Hypoaesthesia [None]
  - Pain [None]
  - Vision blurred [None]
  - Myalgia [None]
  - Amnesia [None]
  - Ageusia [None]
  - Hot flush [None]
  - Migraine [None]
  - Asthenia [None]
  - Insomnia [None]
  - Musculoskeletal pain [None]
  - Weight decreased [None]
  - Dry mouth [None]
  - Ear pain [None]
  - Dizziness [None]
